FAERS Safety Report 6007602-X (Version None)
Quarter: 2008Q4

REPORT INFORMATION
  Report Type: 
  Country: None (occurrence: None)
  Receive Date: 20081217
  Receipt Date: 20080320
  Transmission Date: 20090506
  Serious: No
  Sender: FDA-Public Use
  Company Number: US-ASTRAZENECA-2008UW05672

PATIENT
  Age: 53 Year
  Sex: Male
  Weight: 83.9 kg

DRUGS (5)
  1. CRESTOR [Suspect]
     Route: 048
     Dates: start: 20080301
  2. CRESTOR [Suspect]
     Route: 048
     Dates: start: 20080313
  3. GAVISCON [Concomitant]
  4. TITRALAC [Concomitant]
  5. PEPCID [Concomitant]

REACTIONS (3)
  - ABDOMINAL DISTENSION [None]
  - FLATULENCE [None]
  - MYALGIA [None]
